FAERS Safety Report 4968563-5 (Version None)
Quarter: 2006Q2

REPORT INFORMATION
  Report Type: 
  Country: None (occurrence: None)
  Receive Date: 20060411
  Receipt Date: 20060406
  Transmission Date: 20061013
  Serious: Yes (Hospitalization)
  Sender: FDA-Public Use
  Company Number: US-RB-3088-2006

PATIENT
  Sex: Female
  Weight: 79.45 kg

DRUGS (5)
  1. BUPRENORPHINE, NALOXONE [Suspect]
     Indication: DRUG DEPENDENCE
     Dosage: UNKNOWN DOSES AS PART OF WITHDRAWAL REGIME. STATED ^DAILY TAPER DOWN^
     Dates: start: 20060310, end: 20060325
  2. BUPRENORPHINE HCL [Interacting]
     Dosage: UNKNOWN
     Dates: start: 20060326
  3. DIAZEPAM [Concomitant]
     Dates: start: 20060329
  4. BUPROPION HYDROCHLORIDE [Concomitant]
  5. MEDICINALPRODUCT NOT SPECIFIED BY SENDER [Concomitant]
     Indication: LUNG INFECTION
     Dosage: UNKNOWN
     Dates: start: 20060329

REACTIONS (5)
  - COUGH [None]
  - DECREASED APPETITE [None]
  - DISORIENTATION [None]
  - DYSPNOEA [None]
  - WEIGHT DECREASED [None]
